FAERS Safety Report 6182568-0 (Version None)
Quarter: 2009Q2

REPORT INFORMATION
  Report Type: 
  Country: None (occurrence: None)
  Receive Date: 20090507
  Receipt Date: 20090427
  Transmission Date: 20091009
  Serious: Yes (Other)
  Sender: FDA-Public Use
  Company Number: US-AMGEN-TCS344686

PATIENT
  Sex: Female

DRUGS (1)
  1. ENBREL [Suspect]
     Indication: RHEUMATOID ARTHRITIS
     Route: 058

REACTIONS (8)
  - HYPOAESTHESIA [None]
  - PARAESTHESIA [None]
  - PLATYBASIA [None]
  - PNEUMONIA [None]
  - ROTATOR CUFF SYNDROME [None]
  - SENSORY DISTURBANCE [None]
  - VERTEBRAL COLUMN MASS [None]
  - VISUAL IMPAIRMENT [None]
